FAERS Safety Report 5287780-0 (Version None)
Quarter: 2007Q2

REPORT INFORMATION
  Report Type: 
  Country: None (occurrence: None)
  Receive Date: 20070405
  Receipt Date: 20070323
  Transmission Date: 20071010
  Serious: Yes (Hospitalization)
  Sender: FDA-Public Use
  Company Number: PHEH2007US02071

PATIENT
  Age: 61 Year
  Sex: Male
  Weight: 106.12 kg

DRUGS (11)
  1. ZOMETA [Suspect]
     Indication: METASTASES TO BONE
     Dosage: 4 MG
     Dates: start: 20070206
  2. ERBITUX [Suspect]
     Indication: COLON CANCER
     Dosage: 464 MG, ONCE/SINGLE
     Dates: start: 20070206
  3. COUMADIN [Concomitant]
     Dosage: 1 MG, QD
  4. PHENERGAN HCL [Concomitant]
     Indication: NAUSEA
     Dosage: 25 MG, TID
     Route: 048
  5. LOVASTATIN [Concomitant]
     Indication: BLOOD CHOLESTEROL
     Dosage: 20 MG, QD
  6. ACIPHEX [Concomitant]
     Indication: GASTROINTESTINAL DISORDER
     Dosage: UNK, QD
     Route: 048
  7. IMIPRAMINE [Concomitant]
     Dosage: 100 MG, QD
  8. PRILOSEC [Concomitant]
     Indication: GASTROINTESTINAL DISORDER
     Dosage: UNK, QD
     Route: 048
  9. IRON [Concomitant]
     Dosage: UNK, QD
     Route: 048
  10. TAXOTERE [Concomitant]
     Dates: start: 20061010
  11. CARBOPLATIN [Concomitant]
     Dates: start: 20061010

REACTIONS (28)
  - ACUTE RESPIRATORY FAILURE [None]
  - AGGRESSION [None]
  - AGITATION [None]
  - ASPARTATE AMINOTRANSFERASE INCREASED [None]
  - BLOOD CALCIUM DECREASED [None]
  - BLOOD CHLORIDE INCREASED [None]
  - BLOOD GLUCOSE INCREASED [None]
  - BLOOD POTASSIUM DECREASED [None]
  - BLOOD PRESSURE SYSTOLIC DECREASED [None]
  - CARDIOMEGALY [None]
  - CEREBRAL ATROPHY [None]
  - CHILLS [None]
  - COMPUTERISED TOMOGRAM ABNORMAL [None]
  - CONFUSIONAL STATE [None]
  - DELIRIUM [None]
  - DISORIENTATION [None]
  - INTUBATION [None]
  - LUMBAR PUNCTURE ABNORMAL [None]
  - LUNG CONSOLIDATION [None]
  - MENINGITIS ASEPTIC [None]
  - MONOCYTE COUNT ABNORMAL [None]
  - NASOPHARYNGITIS [None]
  - NEUTROPHIL COUNT ABNORMAL [None]
  - PLEURAL EFFUSION [None]
  - PYREXIA [None]
  - SINUSITIS [None]
  - TREMOR [None]
  - X-RAY ABNORMAL [None]
